FAERS Safety Report 25106574 (Version 2)
Quarter: 2025Q3

REPORT INFORMATION
  Report Type: Report from Study
  Country: US (occurrence: US)
  Receive Date: 20250321
  Receipt Date: 20250801
  Transmission Date: 20251020
  Serious: Yes (Other)
  Sender: TAIHO ONCOLOGY INC
  Company Number: US-TAIHOP-2024-004972

PATIENT
  Age: 73 Year
  Sex: Female

DRUGS (16)
  1. LONSURF [Suspect]
     Active Substance: TIPIRACIL HYDROCHLORIDE\TRIFLURIDINE
     Indication: Colon cancer
     Dosage: CYCLE UNKNOWN.
     Route: 048
  2. LONSURF [Suspect]
     Active Substance: TIPIRACIL HYDROCHLORIDE\TRIFLURIDINE
     Dosage: MORNING- 40MG (2 PILLS)?EVENING-20 MG (1 PILL)?CYCLE UNKNOWN.?DAILY DOSE: 60 MILLIGRAM(S)
     Route: 048
     Dates: start: 20240229
  3. AMLODIPINE [Concomitant]
     Active Substance: AMLODIPINE BESYLATE
     Indication: Product used for unknown indication
  4. ANUSOL-HC [Concomitant]
     Active Substance: HYDROCORTISONE
     Indication: Product used for unknown indication
  5. ERGOCALCIFER [Concomitant]
     Indication: Product used for unknown indication
  6. LIDO/PRILOCN [Concomitant]
     Indication: Product used for unknown indication
  7. LOPERAMIDE [Concomitant]
     Active Substance: LOPERAMIDE
     Indication: Product used for unknown indication
  8. MOUTHWASH [Concomitant]
     Indication: Product used for unknown indication
  9. OLM MED/HCTZ [Concomitant]
     Indication: Product used for unknown indication
  10. OLMESA MEDOX [Concomitant]
     Indication: Product used for unknown indication
  11. OLMESA MEDOX [Concomitant]
  12. OXYCODONE AND ACETAMINOPHEN [Concomitant]
     Active Substance: ACETAMINOPHEN\OXYCODONE HYDROCHLORIDE
     Indication: Product used for unknown indication
  13. POT CHLORIDE ER [Concomitant]
     Indication: Product used for unknown indication
  14. RETACRIT [Concomitant]
     Active Substance: EPOETIN ALFA-EPBX
     Indication: Product used for unknown indication
  15. TYLENOL 8HR [Concomitant]
     Active Substance: ACETAMINOPHEN
     Indication: Product used for unknown indication
  16. VITAMIN D [Concomitant]
     Active Substance: VITAMIN D NOS
     Indication: Product used for unknown indication

REACTIONS (5)
  - Hydronephrosis [Unknown]
  - Neutropenia [Unknown]
  - COVID-19 [Unknown]
  - Headache [Unknown]
  - Anaemia [Unknown]

NARRATIVE: CASE EVENT DATE: 20241016
